FAERS Safety Report 11700089 (Version 1)
Quarter: 2015Q4

REPORT INFORMATION
  Report Type: Spontaneous
  Country: US (occurrence: None)
  Receive Date: 20151104
  Receipt Date: 20151104
  Transmission Date: 20160304
  Serious: Yes (Hospitalization)
  Sender: FDA-Public Use
  Company Number: None

PATIENT
  Age: 81 Year
  Sex: Male
  Weight: 67.6 kg

DRUGS (1)
  1. WARFARIN [Suspect]
     Active Substance: WARFARIN
     Indication: ATRIAL FIBRILLATION
     Route: 048
     Dates: start: 20120720, end: 20120830

REACTIONS (8)
  - Rash [None]
  - Necrosis [None]
  - Pruritus [None]
  - Acute kidney injury [None]
  - Dyspnoea [None]
  - Oedema [None]
  - Hyponatraemia [None]
  - Cardiac failure congestive [None]

NARRATIVE: CASE EVENT DATE: 20120823
